FAERS Safety Report 7958432-0 (Version None)
Quarter: 2011Q4

REPORT INFORMATION
  Report Type: 
  Country: None (occurrence: None)
  Receive Date: 20111205
  Receipt Date: 20111121
  Transmission Date: 20120403
  Serious: Yes (Hospitalization, Other)
  Sender: FDA-Public Use
  Company Number: CN-CELGENEUS-035-20785-11113233

PATIENT
  Age: 28 Year
  Sex: Male

DRUGS (7)
  1. THALIDOMIDE [Suspect]
     Indication: ANKYLOSING SPONDYLITIS
     Dosage: 100 MILLIGRAM
     Route: 048
     Dates: start: 20070312
  2. ETANECEPT [Concomitant]
     Indication: ANKYLOSING SPONDYLITIS
     Dosage: 7.1429 MILLIGRAM
     Route: 058
     Dates: start: 20070312
  3. SOMATOSTATIN [Concomitant]
     Route: 065
  4. OMEPRAZOLE [Concomitant]
     Route: 065
  5. ETAMSYLATE [Concomitant]
     Route: 065
  6. ETANECEPT [Concomitant]
     Dosage: 1.7857 MILLIGRAM
     Route: 058
  7. ETANECEPT [Concomitant]
     Dosage: 3.5714 MILLIGRAM
     Route: 058

REACTIONS (2)
  - ACUTE LYMPHOCYTIC LEUKAEMIA [None]
  - GASTROINTESTINAL HAEMORRHAGE [None]
